FAERS Safety Report 5787908-X (Version None)
Quarter: 2008Q2

REPORT INFORMATION
  Report Type: 
  Country: None (occurrence: None)
  Receive Date: 20080625
  Receipt Date: 20080619
  Transmission Date: 20081010
  Serious: Yes (Other)
  Sender: FDA-Public Use
  Company Number: A0732485A

PATIENT
  Age: 71 Year
  Sex: Male
  Weight: 82.7 kg

DRUGS (2)
  1. ADVAIR DISKUS 100/50 [Suspect]
     Indication: DRUG USE FOR UNKNOWN INDICATION
     Route: 055
  2. NONE [Concomitant]

REACTIONS (13)
  - ALLERGY TO CHEMICALS [None]
  - DYSPNOEA [None]
  - ERYTHEMA [None]
  - MUSCLE SPASMS [None]
  - OEDEMA PERIPHERAL [None]
  - PAIN [None]
  - PHOTOSENSITIVITY REACTION [None]
  - PROSTATE CANCER [None]
  - PRURITUS [None]
  - RECTAL DISCHARGE [None]
  - RECTAL HAEMORRHAGE [None]
  - SENSORY LOSS [None]
  - SUNBURN [None]
